FAERS Safety Report 10056648 (Version 3)
Quarter: 2014Q2

REPORT INFORMATION
  Report Type: Spontaneous
  Country: US (occurrence: None)
  Receive Date: 20140401
  Receipt Date: 20140623
  Transmission Date: 20141212
  Serious: Yes (Other)
  Sender: FDA-Public Use
  Company Number: 2014-US-003515

PATIENT
  Age: 58 Year
  Sex: Female
  Weight: 61.7 kg

DRUGS (26)
  1. XYREM [Suspect]
     Indication: NARCOLEPSY
     Route: 048
     Dates: start: 200312
  2. XYREM [Suspect]
     Indication: SOMNOLENCE
     Route: 048
     Dates: start: 200312
  3. AMBIEN (ZOLPIDEM TARTRATE) [Suspect]
     Indication: PRODUCT USED FOR UNKNOWN INDICATION
  4. LUNESTA [Suspect]
     Indication: PRODUCT USED FOR UNKNOWN INDICATION
  5. RESTASIS (CICLOSPORIN) [Concomitant]
  6. MINOCYCLINE (MINOCYCLINE HYDROCHLORIDE) [Concomitant]
  7. LEVOTHYROXINE (LEVOTHYROXINE) [Concomitant]
  8. PANTOPRAZOLE ACTAVIS (PANTOPRAZOLE SODIUM SESQUIHYDRATE) [Concomitant]
  9. HCTZ (HYDROCHLOROTHIAZIDE) [Concomitant]
  10. VITAMIN (ASCORBIC ACID, CALCIUM GLUCONATEM CALCIUM PANTOTHENATE, CALCIUM PHOSPHATE, CYANOCOBALMIN, ERGOCALCIFEROL, FERROUS FUMARATE, FOLIC ACID, MAGNESIUM PHOSPHATE, NICOTINAMIDE, PYRIDOXINE HYDROCHLORIDE, RETINOL, RIBOFLAVIN, THAIMINE HYDROCHLIORIDE, TO [Concomitant]
  11. CITALOPRAM (CITALOPRAM HYDROBROMIDE) [Concomitant]
  12. MIRALAX (MACROGOL) [Concomitant]
  13. BENEFIBER (TERBENAFINE HYDRCHLORIDE) [Concomitant]
  14. VITAMIN 15 (ASCORBIC ACID, CALCIUM GLUCONATE, CALCIUM PANTOTHENATE, CALCIUM PHOSPHATE, CYANOCOBALMIN, ERGOCALCIFEROL, FERROUS FUMARATE, FOLIC MAGNESIUM PHOSPHATE, NICOTINAMIDE, PYRIDOINE HYDROCHLORIDE, RETINOL, RIBOFLAVIN, THIAMINE HYDROCHLORIDE, TOCOPHE [Concomitant]
  15. FISH OIL (FISH OIL) [Concomitant]
  16. VITAMIN D (ERGOCALCIFEROL) [Concomitant]
  17. VITAMIN E (TOCOPHEROL) [Concomitant]
  18. VITAMIN C (ASCORBIC ACID) [Concomitant]
  19. IRON (IRON) [Concomitant]
  20. ANTIHISTAMINES (ANTIHISTAMINES) [Concomitant]
  21. PANTOPRAZOLE ACTAVIS (PANTOPRAZOLE SODIUM SESQUIHYDRATE) [Concomitant]
  22. BENZAPRIL (CISAPRIDE) [Concomitant]
  23. VIRT-VITE FORTE (VITAMIN) [Concomitant]
  24. BENAFIBER (POLYCARBOPHIL CALCIUM) [Concomitant]
  25. WOMEN^S VITAMIN 50+ (VITAMIN) [Concomitant]
  26. CALCIUM + IRON (CALCIUM, IRON) [Concomitant]

REACTIONS (21)
  - Cataract [None]
  - Cataract operation [None]
  - Ocular hyperaemia [None]
  - Eye discharge [None]
  - Gait disturbance [None]
  - Unevaluable event [None]
  - Ocular hyperaemia [None]
  - Hunger [None]
  - Hypersensitivity [None]
  - Vitamin B12 deficiency [None]
  - Dysgeusia [None]
  - Stomatitis [None]
  - Lichen planus [None]
  - Gait disturbance [None]
  - Balance disorder [None]
  - Somnambulism [None]
  - Abnormal sleep-related event [None]
  - Sinusitis [None]
  - Neck pain [None]
  - Condition aggravated [None]
  - Retinal detachment [None]
